FAERS Safety Report 9393168 (Version 1)
Quarter: 2013Q3

REPORT INFORMATION
  Report Type: Spontaneous
  Country: AT (occurrence: AT)
  Receive Date: 20130710
  Receipt Date: 20130710
  Transmission Date: 20140515
  Serious: Yes (Life-Threatening)
  Sender: FDA-Public Use
  Company Number: AT-B.I. PHARMACEUTICALS,INC./RIDGEFIELD-2013-AP-00547AP

PATIENT
  Age: 65 Year
  Sex: Male
  Weight: 82 kg

DRUGS (9)
  1. TRAJENTA [Suspect]
     Indication: TYPE 2 DIABETES MELLITUS
     Dosage: 5 MG
     Route: 048
     Dates: start: 20121129, end: 20130514
  2. JANUVIA [Suspect]
     Indication: TYPE 2 DIABETES MELLITUS
     Dosage: 100 MG
     Route: 048
     Dates: start: 20120810
  3. JANUVIA [Suspect]
     Indication: TYPE 2 DIABETES MELLITUS
     Dosage: 50 MG
     Route: 048
     Dates: start: 2012, end: 20121129
  4. CO-ENAC [Concomitant]
  5. LIORESAL [Concomitant]
  6. SIMVASTATIN [Concomitant]
  7. METOHEXAL [Concomitant]
  8. INSUMAN COMB [Concomitant]
  9. AMLODIPINE [Concomitant]

REACTIONS (1)
  - Pancreatic carcinoma [Recovered/Resolved with Sequelae]
